FAERS Safety Report 7124185-1 (Version None)
Quarter: 2010Q4

REPORT INFORMATION
  Report Type: 
  Country: None (occurrence: None)
  Receive Date: 20101126
  Receipt Date: 20101123
  Transmission Date: 20110411
  Serious: Yes (Hospitalization)
  Sender: FDA-Public Use
  Company Number: NO-BRISTOL-MYERS SQUIBB COMPANY-15370786

PATIENT
  Age: 63 Year
  Sex: Male

DRUGS (5)
  1. ONGLYZA [Suspect]
     Indication: DIABETES MELLITUS
     Dates: start: 20100620, end: 20101016
  2. ONGLYZA [Suspect]
     Indication: HYPERTENSION
     Dates: start: 20100620, end: 20101016
  3. APROVEL [Concomitant]
  4. GLUCOPHAGE [Concomitant]
  5. CARDIZEM [Concomitant]
     Dosage: CARDIZEM RETARD

REACTIONS (2)
  - HEPATITIS TOXIC [None]
  - LIVER DISORDER [None]
